FAERS Safety Report 19233262 (Version 1)
Quarter: 2021Q2

REPORT INFORMATION
  Report Type: Spontaneous
  Country: CN (occurrence: CN)
  Receive Date: 20210507
  Receipt Date: 20210507
  Transmission Date: 20210717
  Serious: Yes (Other)
  Sender: FDA-Public Use
  Company Number: CN-ROCHE-2822467

PATIENT
  Age: 59 Year
  Sex: Female

DRUGS (8)
  1. CYCLOPHOSPHAMIDE. [Concomitant]
     Active Substance: CYCLOPHOSPHAMIDE
  2. PREDNISONE. [Concomitant]
     Active Substance: PREDNISONE
     Indication: FOLLICULAR LYMPHOMA
     Dates: start: 2013
  3. OBINUTUZUMAB. [Suspect]
     Active Substance: OBINUTUZUMAB
     Route: 065
     Dates: start: 201403
  4. CYCLOPHOSPHAMIDE. [Concomitant]
     Active Substance: CYCLOPHOSPHAMIDE
     Indication: FOLLICULAR LYMPHOMA
     Dates: start: 2013
  5. DOXORUBICIN [Concomitant]
     Active Substance: DOXORUBICIN
     Indication: FOLLICULAR LYMPHOMA
     Dates: start: 2013
  6. DOXORUBICIN [Concomitant]
     Active Substance: DOXORUBICIN
  7. VINCRISTINE [Concomitant]
     Active Substance: VINCRISTINE
     Indication: FOLLICULAR LYMPHOMA
     Dates: start: 2013
  8. OBINUTUZUMAB. [Suspect]
     Active Substance: OBINUTUZUMAB
     Indication: FOLLICULAR LYMPHOMA
     Route: 065
     Dates: start: 2013

REACTIONS (7)
  - Haematotoxicity [Recovering/Resolving]
  - White blood cell count decreased [Recovered/Resolved]
  - Pyrexia [Recovered/Resolved]
  - Neutrophil count decreased [Recovering/Resolving]
  - Hypertension [Recovered/Resolved]
  - Sinus tachycardia [Recovered/Resolved]
  - Infection [Recovered/Resolved]

NARRATIVE: CASE EVENT DATE: 2013
